FAERS Safety Report 9704139 (Version 3)
Quarter: 2014Q3

REPORT INFORMATION
  Report Type: Spontaneous
  Country: US (occurrence: US)
  Receive Date: 20131122
  Receipt Date: 20140924
  Transmission Date: 20150326
  Serious: Yes (Death, Hospitalization)
  Sender: FDA-Public Use
  Company Number: US-GLAXOSMITHKLINE-A1024384A

PATIENT
  Age: 77 Year
  Sex: Male

DRUGS (16)
  1. LANOXIN [Suspect]
     Active Substance: DIGOXIN
     Indication: PRODUCT USED FOR UNKNOWN INDICATION
     Dosage: .125MG UNKNOWN
     Route: 065
     Dates: start: 20071126
  2. FUROSEMIDE. [Concomitant]
     Active Substance: FUROSEMIDE
  3. AVODART [Suspect]
     Active Substance: DUTASTERIDE
     Indication: MICTURITION URGENCY
     Dosage: 1CAP PER DAY
     Route: 048
     Dates: start: 201306
  4. ALDACTONE [Concomitant]
     Active Substance: SPIRONOLACTONE
  5. PRAVACHOL [Concomitant]
     Active Substance: PRAVASTATIN SODIUM
  6. VITAMIN D [Concomitant]
     Active Substance: CHOLECALCIFEROL
  7. ATIVAN [Concomitant]
     Active Substance: LORAZEPAM
  8. PRADAXA [Concomitant]
     Active Substance: DABIGATRAN ETEXILATE MESYLATE
  9. TOPROL XL [Concomitant]
     Active Substance: METOPROLOL SUCCINATE
  10. LYRICA [Concomitant]
     Active Substance: PREGABALIN
  11. LEXAPRO [Concomitant]
     Active Substance: ESCITALOPRAM OXALATE
  12. NEXIUM [Concomitant]
     Active Substance: ESOMEPRAZOLE MAGNESIUM
  13. TAMSULOSIN [Concomitant]
     Active Substance: TAMSULOSIN
  14. FISH OIL [Concomitant]
     Active Substance: FISH OIL
  15. WELLBUTRIN SR [Suspect]
     Active Substance: BUPROPION HYDROCHLORIDE
     Indication: PRODUCT USED FOR UNKNOWN INDICATION
     Dosage: 150MG UNKNOWN
     Route: 048
     Dates: start: 20091209
  16. MULTIVITAMIN [Concomitant]
     Active Substance: VITAMINS

REACTIONS (9)
  - Fall [Not Recovered/Not Resolved]
  - Investigation [Unknown]
  - Amnesia [Not Recovered/Not Resolved]
  - Depressed mood [Not Recovered/Not Resolved]
  - Malaise [Not Recovered/Not Resolved]
  - Feeling abnormal [Not Recovered/Not Resolved]
  - Death [Fatal]
  - Fall [Not Recovered/Not Resolved]
  - Balance disorder [Not Recovered/Not Resolved]

NARRATIVE: CASE EVENT DATE: 20130401
